FAERS Safety Report 7223158-8 (Version None)
Quarter: 2011Q1

REPORT INFORMATION
  Report Type: 
  Country: None (occurrence: None)
  Receive Date: 20110112
  Receipt Date: 20100203
  Transmission Date: 20110831
  Serious: No
  Sender: FDA-Public Use
  Company Number: US-ALLERGAN-1001424US

PATIENT
  Sex: Female

DRUGS (12)
  1. RESTASIS [Suspect]
     Indication: DRY EYE
     Dosage: UNK
     Route: 047
     Dates: start: 20100202
  2. LORAZEPAM [Concomitant]
  3. VITAMIN TAB [Concomitant]
  4. FISH OIL [Concomitant]
  5. PREVACID [Concomitant]
  6. FLUDROCORTISONE [Concomitant]
  7. ACTINAL [Concomitant]
  8. NORPACE [Concomitant]
  9. POTASSIUM [Concomitant]
  10. CYMBALTA [Concomitant]
  11. SYNTHROID [Concomitant]
  12. PRAVASTAN [Concomitant]

REACTIONS (2)
  - DRY EYE [None]
  - EYE IRRITATION [None]
